FAERS Safety Report 4996697-8 (Version None)
Quarter: 2006Q2

REPORT INFORMATION
  Report Type: 
  Country: None (occurrence: None)
  Receive Date: 20060509
  Receipt Date: 20050831
  Transmission Date: 20061013
  Serious: Yes (Hospitalization)
  Sender: FDA-Public Use
  Company Number: FR-MERCK-0509FRA00022

PATIENT
  Age: 50 Year
  Sex: Male

DRUGS (1)
  1. VIOXX [Suspect]
     Indication: TENDONITIS
     Route: 048
     Dates: start: 20020530, end: 20020601

REACTIONS (3)
  - ACUTE MYOCARDIAL INFARCTION [None]
  - DEPRESSION [None]
  - THROMBOSIS IN DEVICE [None]
